FAERS Safety Report 13341997 (Version 1)
Quarter: 2017Q1

REPORT INFORMATION
  Report Type: Report from Study
  Country: US (occurrence: US)
  Receive Date: 20170316
  Receipt Date: 20170316
  Transmission Date: 20170428
  Serious: Yes (Other)
  Sender: FDA-Public Use
  Company Number: US-GILEAD-2017-0262605

PATIENT
  Age: 61 Year
  Sex: Female

DRUGS (1)
  1. AMBRISENTAN [Suspect]
     Active Substance: AMBRISENTAN
     Indication: PRODUCT USED FOR UNKNOWN INDICATION
     Dosage: `5 MG, QD
     Route: 065
     Dates: start: 20120124, end: 20170313

REACTIONS (3)
  - Catheterisation cardiac [Unknown]
  - Off label use [Recovered/Resolved]
  - Cardiac valve disease [Unknown]
